FAERS Safety Report 8801154 (Version 2)
Quarter: 2012Q4

REPORT INFORMATION
  Report Type: 
  Country: US (occurrence: US)
  Receive Date: 20120921
  Receipt Date: 20121025
  Transmission Date: 20130627
  Serious: Yes (Other)
  Sender: FDA-Public Use
  Company Number: US-NAPPMUNDI-USA-2012-0093337

PATIENT
  Sex: Male
  Weight: 64.85 kg

DRUGS (1)
  1. BUTRANS [Suspect]
     Indication: PRODUCT USED FOR UNKNOWN INDICATION
     Dosage: 10 mcg/hr, UNK
     Route: 062
     Dates: start: 20120730, end: 20120813

REACTIONS (1)
  - Malignant neoplasm progression [Unknown]
